FAERS Safety Report 4542186-4 (Version None)
Quarter: 2004Q4

REPORT INFORMATION
  Report Type: 
  Country: None (occurrence: None)
  Receive Date: 20041227
  Receipt Date: 20041216
  Transmission Date: 20050328
  Serious: Yes (Death, Hospitalization, Other)
  Sender: FDA-Public Use
  Company Number: 2004-11-0641

PATIENT
  Age: 68 Year
  Sex: Male
  Weight: 79.8331 kg

DRUGS (14)
  1. TEMODAR [Suspect]
     Indication: GLIOBLASTOMA MULTIFORME
     Dosage: SEE IMAGE
     Route: 048
     Dates: end: 20040601
  2. TEMODAR [Suspect]
     Indication: GLIOBLASTOMA MULTIFORME
     Dosage: SEE IMAGE
     Route: 048
     Dates: start: 20040802, end: 20040806
  3. TEMODAR [Suspect]
     Indication: GLIOBLASTOMA MULTIFORME
     Dosage: SEE IMAGE
     Route: 048
     Dates: start: 20040902, end: 20040906
  4. TEMODAR [Suspect]
     Indication: GLIOBLASTOMA MULTIFORME
     Dosage: SEE IMAGE
     Route: 048
     Dates: end: 20040906
  5. ASPIRIN [Concomitant]
  6. ZOFRAN [Concomitant]
  7. LANTUS [Concomitant]
  8. BUSPIRONE [Concomitant]
  9. COUMADIN [Concomitant]
  10. K-DUR 10 [Concomitant]
  11. NEURONTIN [Concomitant]
  12. DECADRON [Concomitant]
  13. PEPCID [Concomitant]
  14. CELEXA [Concomitant]

REACTIONS (10)
  - BLINDNESS [None]
  - BLISTER [None]
  - BRAIN NEOPLASM [None]
  - CD4 LYMPHOCYTES DECREASED [None]
  - CELLULITIS [None]
  - DISEASE PROGRESSION [None]
  - FALL [None]
  - HERPES VIRUS INFECTION [None]
  - IMMUNOSUPPRESSION [None]
  - LYMPHOPENIA [None]
